FAERS Safety Report 10265540 (Version 1)
Quarter: 2014Q2

REPORT INFORMATION
  Report Type: Spontaneous
  Country: US (occurrence: None)
  Receive Date: 20140625
  Receipt Date: 20140625
  Transmission Date: 20141212
  Serious: Yes (Life-Threatening, Disabling)
  Sender: FDA-Public Use
  Company Number: None

PATIENT
  Age: 68 Year
  Sex: Male

DRUGS (1)
  1. LIPITOR [Suspect]
     Indication: HYPERLIPIDAEMIA
     Route: 048

REACTIONS (5)
  - Muscle spasms [None]
  - Muscle atrophy [None]
  - Muscular weakness [None]
  - Amyotrophic lateral sclerosis [None]
  - Activities of daily living impaired [None]
